FAERS Safety Report 10288301 (Version 1)
Quarter: 2014Q3

REPORT INFORMATION
  Report Type: Spontaneous
  Country: DE (occurrence: DE)
  Receive Date: 20140709
  Receipt Date: 20140709
  Transmission Date: 20150326
  Serious: Yes (Death, Other)
  Sender: FDA-Public Use
  Company Number: DE-ACTAVIS-2014-14636

PATIENT
  Age: 46 Year
  Sex: Male

DRUGS (2)
  1. DIAZEPAM (UNKNOWN) [Suspect]
     Active Substance: DIAZEPAM
     Indication: SUICIDE ATTEMPT
     Dosage: UNK
     Route: 042
  2. PROPOFOL. [Interacting]
     Active Substance: PROPOFOL
     Indication: SUICIDE ATTEMPT
     Dosage: UNK
     Route: 042

REACTIONS (6)
  - Completed suicide [Fatal]
  - Pulmonary oedema [Fatal]
  - Respiratory depression [Fatal]
  - Brain oedema [Fatal]
  - Drug interaction [Fatal]
  - Visceral congestion [Fatal]
